FAERS Safety Report 7989265-7 (Version None)
Quarter: 2011Q4

REPORT INFORMATION
  Report Type: 
  Country: None (occurrence: None)
  Receive Date: 20111219
  Receipt Date: 20111206
  Transmission Date: 20120403
  Serious: Yes (Hospitalization)
  Sender: FDA-Public Use
  Company Number: FR-JNJFOC-20110702388

PATIENT
  Sex: Female
  Weight: 43.2 kg

DRUGS (6)
  1. REMICADE [Suspect]
     Indication: CROHN'S DISEASE
     Route: 042
     Dates: start: 20090430
  2. NEXIUM [Concomitant]
  3. CALCIUM CARBONATE [Concomitant]
  4. AZATHIOPRINE [Concomitant]
  5. DOMPERIDONE [Concomitant]
  6. BUDESONIDE [Concomitant]

REACTIONS (1)
  - CAMPYLOBACTER INFECTION [None]
